FAERS Safety Report 19649304 (Version 1)
Quarter: 2021Q3

REPORT INFORMATION
  Report Type: Report from Study
  Country: US (occurrence: US)
  Receive Date: 20210803
  Receipt Date: 20210803
  Transmission Date: 20211014
  Serious: Yes (Hospitalization, Other)
  Sender: FDA-Public Use
  Company Number: US-BRISTOL-MYERS SQUIBB COMPANY-BMS-2021-073508

PATIENT
  Age: 83 Year
  Sex: Male
  Weight: 90.7 kg

DRUGS (2)
  1. APIXABAN [Suspect]
     Active Substance: APIXABAN
     Indication: CEREBROVASCULAR ACCIDENT PROPHYLAXIS
     Dosage: 5 MILLIGRAM, BID
     Route: 048
     Dates: start: 2019
  2. APIXABAN [Suspect]
     Active Substance: APIXABAN
     Dosage: 2.5 MILLIGRAM, BID
     Route: 048

REACTIONS (6)
  - Loss of consciousness [Unknown]
  - Wrong technique in product usage process [Unknown]
  - Rhinorrhoea [Recovered/Resolved]
  - Eye disorder [Unknown]
  - Lacrimation increased [Recovered/Resolved]
  - Endocarditis bacterial [Unknown]

NARRATIVE: CASE EVENT DATE: 2019
